FAERS Safety Report 18825346 (Version 1)
Quarter: 2021Q1

REPORT INFORMATION
  Report Type: Spontaneous
  Country: IL (occurrence: IL)
  Receive Date: 20210202
  Receipt Date: 20210202
  Transmission Date: 20210419
  Serious: Yes (Hospitalization, Other)
  Sender: FDA-Public Use
  Company Number: IL-ROCHE-2758764

PATIENT
  Age: 25 Year
  Sex: Male

DRUGS (4)
  1. PLAQUENIL [Concomitant]
     Active Substance: HYDROXYCHLOROQUINE SULFATE
  2. METHOTREXATE. [Concomitant]
     Active Substance: METHOTREXATE
  3. MABTHERA [Suspect]
     Active Substance: RITUXIMAB
     Indication: MYOSITIS
  4. MABTHERA [Suspect]
     Active Substance: RITUXIMAB
     Indication: SYSTEMIC SCLERODERMA
     Route: 065
     Dates: start: 201611

REACTIONS (15)
  - Off label use [Unknown]
  - Diarrhoea [Unknown]
  - Cardiomyopathy [Unknown]
  - Cardiac dysfunction [Unknown]
  - Raynaud^s phenomenon [Unknown]
  - Skin ulcer [Unknown]
  - Infected skin ulcer [Unknown]
  - Dyspepsia [Unknown]
  - Interstitial lung disease [Unknown]
  - Intentional product use issue [Unknown]
  - Dysphagia [Unknown]
  - Arrhythmia [Unknown]
  - Osteomyelitis [Unknown]
  - Drug hypersensitivity [Unknown]
  - Pulmonary hypertension [Unknown]
